FAERS Safety Report 8470223-3 (Version None)
Quarter: 2012Q2

REPORT INFORMATION
  Report Type: 
  Country: None (occurrence: None)
  Receive Date: 20120621
  Receipt Date: 20120621
  Transmission Date: 20120825
  Serious: No
  Sender: FDA-Public Use
  Company Number: None

PATIENT

DRUGS (3)
  1. LANSOPRAZOLE [Suspect]
     Indication: GASTROOESOPHAGEAL REFLUX DISEASE
     Dosage: 30 MG TWICE DAILY PO
     Route: 048
     Dates: start: 20120423, end: 20120615
  2. LANSOPRAZOLE [Suspect]
     Indication: GASTRITIS
     Dosage: 30 MG TWICE DAILY PO
     Route: 048
     Dates: start: 20120423, end: 20120615
  3. LANSOPRAZOLE [Suspect]
     Indication: OESOPHAGITIS
     Dosage: 30 MG TWICE DAILY PO
     Route: 048
     Dates: start: 20120423, end: 20120615

REACTIONS (2)
  - HALLUCINATION [None]
  - VISUAL IMPAIRMENT [None]
